FAERS Safety Report 7388601-2 (Version None)
Quarter: 2011Q2

REPORT INFORMATION
  Report Type: 
  Country: None (occurrence: None)
  Receive Date: 20110401
  Receipt Date: 20110321
  Transmission Date: 20111010
  Serious: Yes (Other)
  Sender: FDA-Public Use
  Company Number: US-BAYER-2011-025338

PATIENT

DRUGS (1)
  1. AVELOX [Suspect]
     Route: 048

REACTIONS (7)
  - ANAPHYLACTIC REACTION [None]
  - CHEST DISCOMFORT [None]
  - DYSPNOEA [None]
  - INFLAMMATION [None]
  - ERYTHEMA [None]
  - GENERALISED ERYTHEMA [None]
  - PRURITUS [None]
